FAERS Safety Report 24993075 (Version 2)
Quarter: 2025Q1

REPORT INFORMATION
  Report Type: Spontaneous
  Country: FR (occurrence: FR)
  Receive Date: 20250221
  Receipt Date: 20250307
  Transmission Date: 20250408
  Serious: Yes (Other)
  Sender: AZURITY PHARMACEUTICALS
  Company Number: FR-AZURITY PHARMACEUTICALS, INC.-AZR202502-000603

PATIENT
  Age: 76 Year
  Sex: Male

DRUGS (12)
  1. TRIPTORELIN [Suspect]
     Active Substance: TRIPTORELIN
     Indication: Prostate cancer
     Route: 058
     Dates: start: 20241126
  2. ABIRATERONE ACETATE [Suspect]
     Active Substance: ABIRATERONE ACETATE
     Indication: Prostate cancer
     Route: 048
     Dates: start: 20241126
  3. PREDNISOLONE [Suspect]
     Active Substance: PREDNISOLONE
     Indication: Prostate cancer
     Route: 048
     Dates: start: 20241126
  4. HYDROCHLOROTHIAZIDE\LOSARTAN POTASSIUM [Concomitant]
     Active Substance: HYDROCHLOROTHIAZIDE\LOSARTAN POTASSIUM
     Indication: Product used for unknown indication
     Route: 065
  5. VERAPAMIL HYDROCHLORIDE [Concomitant]
     Active Substance: VERAPAMIL HYDROCHLORIDE
     Indication: Product used for unknown indication
     Route: 065
  6. METFORMIN HYDROCHLORIDE [Concomitant]
     Active Substance: METFORMIN HYDROCHLORIDE
     Indication: Product used for unknown indication
     Route: 065
  7. SULPIRIDE [Concomitant]
     Active Substance: SULPIRIDE
     Indication: Product used for unknown indication
     Route: 065
  8. RABEPRAZOLE SODIUM [Concomitant]
     Active Substance: RABEPRAZOLE SODIUM
     Indication: Product used for unknown indication
     Route: 065
  9. PRAVASTATIN SODIUM [Concomitant]
     Active Substance: PRAVASTATIN SODIUM
     Indication: Product used for unknown indication
     Route: 065
  10. ALLOPURINOL [Concomitant]
     Active Substance: ALLOPURINOL
     Indication: Product used for unknown indication
     Route: 065
  11. CHOLECALCIFEROL [Concomitant]
     Active Substance: CHOLECALCIFEROL
     Indication: Product used for unknown indication
     Route: 065
  12. Chlorhydrate de terazosine dihydrate [Concomitant]
     Indication: Product used for unknown indication
     Route: 065

REACTIONS (1)
  - Anaemia [Not Recovered/Not Resolved]

NARRATIVE: CASE EVENT DATE: 20241201
